FAERS Safety Report 8727454 (Version 2)
Quarter: 2012Q4

REPORT INFORMATION
  Report Type: 
  Country: US (occurrence: US)
  Receive Date: 20120816
  Receipt Date: 20121009
  Transmission Date: 20130627
  Serious: No
  Sender: FDA-Public Use
  Company Number: US-ASTRAZENECA-2012SE55697

PATIENT
  Age: 75 Year
  Sex: Male
  Weight: 78 kg

DRUGS (8)
  1. OMEPRAZOLE [Suspect]
     Indication: GASTROOESOPHAGEAL REFLUX DISEASE
     Route: 048
     Dates: end: 201208
  2. CRESTOR [Suspect]
     Indication: BLOOD CHOLESTEROL ABNORMAL
     Route: 048
  3. VIALTA [Concomitant]
     Indication: DIABETES MELLITUS
  4. METFORMIN [Concomitant]
     Indication: DIABETES MELLITUS
  5. GLYBURIDE [Concomitant]
     Indication: DIABETES MELLITUS
  6. LISINOPRIL [Concomitant]
     Indication: HYPERTENSION
  7. PRIMIDONE [Concomitant]
     Indication: PARKINSON^S DISEASE
  8. PLAVIX [Concomitant]
     Indication: STENT PLACEMENT

REACTIONS (2)
  - Myasthenia gravis [Unknown]
  - Parkinson^s disease [Unknown]
